FAERS Safety Report 10168718 (Version 1)
Quarter: 2014Q2

REPORT INFORMATION
  Report Type: Spontaneous
  Country: US (occurrence: None)
  Receive Date: 20140509
  Receipt Date: 20140509
  Transmission Date: 20141212
  Serious: No
  Sender: FDA-Public Use
  Company Number: C-14-033

PATIENT
  Sex: Female

DRUGS (1)
  1. OXYCODONE 30MG TABLETS (KVK-TECH) [Suspect]
     Indication: PAIN

REACTIONS (3)
  - Drug ineffective [None]
  - Drug effect delayed [None]
  - Middle insomnia [None]
